FAERS Safety Report 4813803-6 (Version None)
Quarter: 2005Q4

REPORT INFORMATION
  Report Type: 
  Country: None (occurrence: None)
  Receive Date: 20051028
  Receipt Date: 20050322
  Transmission Date: 20060501
  Serious: No
  Sender: FDA-Public Use
  Company Number: US-GLAXOSMITHKLINE-A0550864A

PATIENT
  Age: 67 Year
  Sex: Female

DRUGS (9)
  1. ADVAIR DISKUS 100/50 [Suspect]
     Indication: ASTHMA
     Dosage: 1PUFF TWICE PER DAY
     Route: 055
     Dates: start: 20040301
  2. FLOVENT [Concomitant]
  3. SPIRIVA [Concomitant]
  4. ATROVENT [Concomitant]
  5. ALBUTEROL [Concomitant]
  6. UNIVAL (SUCRALFATE) [Concomitant]
     Route: 065
  7. ETODOLAC [Concomitant]
  8. PROTONIX [Concomitant]
  9. ALPRAZOLAM [Concomitant]
     Route: 065

REACTIONS (1)
  - DYSPNOEA [None]
